FAERS Safety Report 21293180 (Version 1)
Quarter: 2022Q3

REPORT INFORMATION
  Report Type: Spontaneous
  Country: US (occurrence: US)
  Receive Date: 20220905
  Receipt Date: 20220905
  Transmission Date: 20221027
  Serious: Yes (Hospitalization, Other)
  Sender: FDA-Public Use
  Company Number: US-CIPLA LTD.-2022US05306

PATIENT
  Age: 78 Year
  Sex: Male

DRUGS (1)
  1. OXALIPLATIN [Suspect]
     Active Substance: OXALIPLATIN
     Indication: Pancreatic carcinoma
     Dosage: UNK
     Route: 065

REACTIONS (6)
  - Hypomagnesaemia [Unknown]
  - Atrial fibrillation [Recovered/Resolved]
  - Hypocalcaemia [Unknown]
  - Diarrhoea [Unknown]
  - Hypokalaemia [Unknown]
  - Hypertension [Unknown]
